FAERS Safety Report 9944038 (Version 1)
Quarter: 2014Q1

REPORT INFORMATION
  Report Type: Spontaneous
  Country: GB (occurrence: GB)
  Receive Date: 20140303
  Receipt Date: 20140303
  Transmission Date: 20141002
  Serious: Yes (Death)
  Sender: FDA-Public Use
  Company Number: PHFR2014GB001878

PATIENT
  Age: 70 Year
  Sex: Male

DRUGS (1)
  1. NEORAL [Suspect]

REACTIONS (1)
  - Death [Fatal]
